FAERS Safety Report 19884944 (Version 1)
Quarter: 2021Q3

REPORT INFORMATION
  Report Type: Other
  Country: US (occurrence: US)
  Receive Date: 20210927
  Receipt Date: 20210927
  Transmission Date: 20211014
  Serious: No
  Sender: FDA-Public Use
  Company Number: US-ROCHE-2910854

PATIENT
  Sex: Female

DRUGS (16)
  1. CLONAZEPAM. [Concomitant]
     Active Substance: CLONAZEPAM
     Route: 048
  2. VENLAFAXINE [Concomitant]
     Active Substance: VENLAFAXINE HYDROCHLORIDE
     Route: 048
  3. OCREVUS [Suspect]
     Active Substance: OCRELIZUMAB
     Indication: RELAPSING MULTIPLE SCLEROSIS
     Dosage: DATE OF TREATMENT? 14/MAY/2020, 28/MAY/2020, 03/DEC/2020, 10/JUN/2021?ANTICIPATED DATE OF TREATMENT?
     Route: 065
  4. METOPROLOL TARTRATE. [Concomitant]
     Active Substance: METOPROLOL TARTRATE
     Route: 048
  5. ACTEMRA [Suspect]
     Active Substance: TOCILIZUMAB
     Route: 042
     Dates: start: 20210907
  6. SOLU?MEDROL [Concomitant]
     Active Substance: METHYLPREDNISOLONE SODIUM SUCCINATE
  7. ACTEMRA [Suspect]
     Active Substance: TOCILIZUMAB
     Indication: SARS-COV-2 TEST POSITIVE
     Route: 042
     Dates: start: 20210906
  8. CEPHALEXIN. [Concomitant]
     Active Substance: CEPHALEXIN
     Route: 048
  9. HYDROXYZINE HCL [Concomitant]
     Active Substance: HYDROXYZINE HYDROCHLORIDE
     Dosage: AT BED TIME
     Route: 048
  10. SUMATRIPTAN. [Concomitant]
     Active Substance: SUMATRIPTAN
  11. OMEPRAZOLE. [Concomitant]
     Active Substance: OMEPRAZOLE
     Route: 048
  12. VITAMIN D3 [Concomitant]
     Active Substance: CHOLECALCIFEROL
     Route: 048
  13. OCREVUS [Suspect]
     Active Substance: OCRELIZUMAB
     Indication: SARS-COV-2 TEST POSITIVE
     Route: 042
     Dates: start: 20200514
  14. OCREVUS [Suspect]
     Active Substance: OCRELIZUMAB
     Route: 042
  15. TYLENOL [Concomitant]
     Active Substance: ACETAMINOPHEN
  16. BENADRYL [Concomitant]
     Active Substance: DIPHENHYDRAMINE HYDROCHLORIDE
     Route: 042

REACTIONS (7)
  - Fatigue [Unknown]
  - Headache [Unknown]
  - COVID-19 [Unknown]
  - Off label use [Unknown]
  - Balance disorder [Unknown]
  - Memory impairment [Unknown]
  - Pyrexia [Unknown]
